FAERS Safety Report 4513516-4 (Version None)
Quarter: 2004Q4

REPORT INFORMATION
  Report Type: 
  Country: None (occurrence: None)
  Receive Date: 20041130
  Receipt Date: 20041118
  Transmission Date: 20050328
  Serious: Yes (Death)
  Sender: FDA-Public Use
  Company Number: MK-JNJFOC-20041106522

PATIENT
  Sex: Male
  Weight: 69.5 kg

DRUGS (2)
  1. RISPERIDONE [Suspect]
     Dosage: DOSE: UP TO 3 MG DAILY
  2. RISPERIDONE [Suspect]
     Dosage: DOSE: UP TO 4 MG DAILY

REACTIONS (4)
  - DIABETES MELLITUS INSULIN-DEPENDENT [None]
  - KETOACIDOSIS [None]
  - TREATMENT NONCOMPLIANCE [None]
  - WEIGHT DECREASED [None]
